FAERS Safety Report 20219764 (Version 2)
Quarter: 2022Q2

REPORT INFORMATION
  Report Type: Spontaneous
  Country: FR (occurrence: FR)
  Receive Date: 20211222
  Receipt Date: 20220406
  Transmission Date: 20220721
  Serious: Yes (Death)
  Sender: FDA-Public Use
  Company Number: None

PATIENT
  Age: 77 Year
  Sex: Female
  Weight: 80 kg

DRUGS (2)
  1. TRODELVY [Suspect]
     Active Substance: SACITUZUMAB GOVITECAN-HZIY
     Indication: Breast cancer
     Dosage: 10 MG/KG
     Route: 042
     Dates: start: 20211117, end: 20211124
  2. INNOHEP [Concomitant]
     Active Substance: TINZAPARIN SODIUM

REACTIONS (4)
  - General physical health deterioration [Fatal]
  - Asthenia [Unknown]
  - Nervous system disorder [Unknown]
  - Cardiac disorder [Unknown]

NARRATIVE: CASE EVENT DATE: 20211129
